FAERS Safety Report 12075879 (Version 1)
Quarter: 2016Q1

REPORT INFORMATION
  Report Type: Spontaneous
  Country: US (occurrence: US)
  Receive Date: 20160214
  Receipt Date: 20160214
  Transmission Date: 20160526
  Serious: No
  Sender: FDA-Public Use
  Company Number: US-BIOGEN-2016BI00184547

PATIENT
  Age: 24 Year
  Sex: Female

DRUGS (2)
  1. TYSABRI [Suspect]
     Active Substance: NATALIZUMAB
     Indication: MULTIPLE SCLEROSIS
     Dates: start: 20130410, end: 20140213
  2. TYSABRI [Suspect]
     Active Substance: NATALIZUMAB
     Dates: start: 20151010

REACTIONS (1)
  - Stress [Unknown]

NARRATIVE: CASE EVENT DATE: 20160201
